FAERS Safety Report 23580920 (Version 1)
Quarter: 2024Q1

REPORT INFORMATION
  Report Type: Spontaneous
  Country: US (occurrence: US)
  Receive Date: 20240229
  Receipt Date: 20240229
  Transmission Date: 20240410
  Serious: Yes (Other)
  Sender: FDA-Public Use
  Company Number: US-BRISTOL-MYERS SQUIBB COMPANY-2024-032413

PATIENT
  Age: 76 Year
  Sex: Female

DRUGS (1)
  1. ORENCIA [Suspect]
     Active Substance: ABATACEPT
     Indication: Rheumatoid arthritis
     Dosage: DOSE : INJECT 125MG (1 SYRINGE);     FREQ : ONCE A WEEK.
     Route: 058

REACTIONS (3)
  - Rheumatoid arthritis [Unknown]
  - Exostosis [Unknown]
  - Cataract [Unknown]
